FAERS Safety Report 26103119 (Version 1)
Quarter: 2025Q4

REPORT INFORMATION
  Report Type: Spontaneous
  Country: US (occurrence: US)
  Receive Date: 20251129
  Receipt Date: 20251129
  Transmission Date: 20260117
  Serious: No
  Sender: IBSA INSTITUT BIOCHIMIQUE
  Company Number: US-IBSA PHARMA INC.-2025IBS000033

PATIENT

DRUGS (2)
  1. TIROSINT [Suspect]
     Active Substance: LEVOTHYROXINE SODIUM
     Indication: Product used for unknown indication
     Dosage: 175 MICROGRAM
     Route: 065
  2. TIROSINT [Suspect]
     Active Substance: LEVOTHYROXINE SODIUM
     Dosage: 150 MICROGRAM
     Route: 065

REACTIONS (11)
  - Temperature intolerance [Unknown]
  - Constipation [Unknown]
  - Myalgia [Unknown]
  - Muscle spasms [Unknown]
  - Food craving [Unknown]
  - Depression [Unknown]
  - Neck pain [Unknown]
  - Somnolence [Unknown]
  - Brain fog [Unknown]
  - Weight decreased [Unknown]
  - Blood thyroid stimulating hormone decreased [Unknown]
